FAERS Safety Report 15823256 (Version 1)
Quarter: 2019Q1

REPORT INFORMATION
  Report Type: Spontaneous
  Country: US (occurrence: US)
  Receive Date: 20190114
  Receipt Date: 20190114
  Transmission Date: 20190417
  Serious: Yes (Other)
  Sender: FDA-Public Use
  Company Number: US-JAZZ-2019-US-000239

PATIENT
  Sex: Male

DRUGS (3)
  1. ERWINAZE [Suspect]
     Active Substance: ASPARAGINASE ERWINIA CHRYSANTHEMI
     Indication: PRECURSOR T-LYMPHOBLASTIC LYMPHOMA/LEUKAEMIA
     Dosage: 25000 U, FIRST CYCLE
     Route: 030
     Dates: start: 201806, end: 2018
  2. ERWINAZE [Suspect]
     Active Substance: ASPARAGINASE ERWINIA CHRYSANTHEMI
     Dosage: 25000 U, SECOND CYCLE
     Route: 030
     Dates: start: 2018, end: 201811
  3. ERWINAZE [Suspect]
     Active Substance: ASPARAGINASE ERWINIA CHRYSANTHEMI
     Dosage: 25000 U, THIRD CYCLE
     Route: 030
     Dates: start: 20181205, end: 201812

REACTIONS (1)
  - Urticaria [Recovered/Resolved]
